FAERS Safety Report 18114388 (Version 1)
Quarter: 2020Q3

REPORT INFORMATION
  Report Type: Report from Study
  Country: US (occurrence: US)
  Receive Date: 20200805
  Receipt Date: 20200805
  Transmission Date: 20201103
  Serious: Yes (Death, Hospitalization, Other)
  Sender: FDA-Public Use
  Company Number: NVSC2020US217625

PATIENT
  Age: 94 Year
  Sex: Female

DRUGS (1)
  1. ENTRESTO [Suspect]
     Active Substance: SACUBITRIL\VALSARTAN
     Indication: CARDIAC FAILURE
     Dosage: 1 DF, BID
     Route: 048

REACTIONS (3)
  - Death [Fatal]
  - Blood potassium increased [Unknown]
  - Renal failure [Unknown]

NARRATIVE: CASE EVENT DATE: 20200627
